FAERS Safety Report 19944043 (Version 1)
Quarter: 2021Q4

REPORT INFORMATION
  Report Type: Spontaneous
  Country: BE (occurrence: BE)
  Receive Date: 20211011
  Receipt Date: 20211011
  Transmission Date: 20220303
  Serious: Yes (Other)
  Sender: FDA-Public Use
  Company Number: BE-PPDUS-2021ZX000721

PATIENT
  Age: 6 Year
  Sex: Male

DRUGS (11)
  1. FENFLURAMINE [Suspect]
     Active Substance: FENFLURAMINE
     Indication: Severe myoclonic epilepsy of infancy
     Route: 048
  2. FENFLURAMINE [Suspect]
     Active Substance: FENFLURAMINE
     Route: 048
  3. FENFLURAMINE [Suspect]
     Active Substance: FENFLURAMINE
     Route: 048
  4. FENFLURAMINE [Suspect]
     Active Substance: FENFLURAMINE
     Route: 048
  5. FENFLURAMINE [Suspect]
     Active Substance: FENFLURAMINE
     Route: 048
  6. VALPROIC ACID [Suspect]
     Active Substance: VALPROIC ACID
     Indication: Seizure
     Route: 065
  7. VALPROIC ACID [Suspect]
     Active Substance: VALPROIC ACID
     Dosage: LOWERED WITH 10%
     Route: 065
  8. VALPROIC ACID [Suspect]
     Active Substance: VALPROIC ACID
     Dosage: LOWERED ONE MORE
     Route: 065
  9. VALPROIC ACID [Suspect]
     Active Substance: VALPROIC ACID
     Route: 065
  10. CLOBAZAM [Concomitant]
     Active Substance: CLOBAZAM
     Indication: Product used for unknown indication
     Route: 065
  11. TOPIRAMATE [Concomitant]
     Active Substance: TOPIRAMATE
     Indication: Product used for unknown indication
     Route: 065

REACTIONS (6)
  - Thrombocytopenia [Recovering/Resolving]
  - Fatigue [Recovered/Resolved]
  - White blood cell count decreased [Recovered/Resolved]
  - Neutropenia [Recovered/Resolved]
  - Somnolence [Recovered/Resolved]
  - Decreased appetite [Recovered/Resolved]
